FAERS Safety Report 16439734 (Version 3)
Quarter: 2019Q3

REPORT INFORMATION
  Report Type: Spontaneous
  Country: PT (occurrence: PT)
  Receive Date: 20190617
  Receipt Date: 20190807
  Transmission Date: 20191004
  Serious: Yes (Hospitalization)
  Sender: FDA-Public Use
  Company Number: PT-ROCHE-2336222

PATIENT
  Age: 46 Year
  Sex: Male
  Weight: 83 kg

DRUGS (4)
  1. RIBAVIRIN. [Suspect]
     Active Substance: RIBAVIRIN
     Indication: CHRONIC HEPATITIS C
     Dosage: UNK
     Route: 065
     Dates: start: 2015
  2. HARVONI [Suspect]
     Active Substance: LEDIPASVIR\SOFOSBUVIR
     Indication: CHRONIC HEPATITIS C
     Route: 048
     Dates: start: 20150923, end: 20151217
  3. METHADONE [Concomitant]
     Active Substance: METHADONE HYDROCHLORIDE
  4. DIAZEPAM. [Concomitant]
     Active Substance: DIAZEPAM

REACTIONS (10)
  - Hepatitis C [Unknown]
  - Dysphonia [Unknown]
  - Drug ineffective [Unknown]
  - Laryngeal ulceration [Unknown]
  - Dysphonia [Not Recovered/Not Resolved]
  - Laryngeal disorder [Recovered/Resolved]
  - Oral tuberculosis [Recovered/Resolved]
  - Lymphadenopathy [Unknown]
  - Vocal cord disorder [Unknown]
  - Weight decreased [Unknown]

NARRATIVE: CASE EVENT DATE: 201805
